FAERS Safety Report 19216490 (Version 1)
Quarter: 2021Q2

REPORT INFORMATION
  Report Type: Spontaneous
  Country: US (occurrence: US)
  Receive Date: 20210504
  Receipt Date: 20210504
  Transmission Date: 20210717
  Serious: Yes (Other)
  Sender: FDA-Public Use
  Company Number: None

PATIENT
  Age: 31 Year
  Sex: Male
  Weight: 56.25 kg

DRUGS (3)
  1. MELATONIN [Concomitant]
     Active Substance: MELATONIN
  2. CIPROFLOXACIN 500MG TABLET [Suspect]
     Active Substance: CIPROFLOXACIN
     Indication: PROSTATITIS
     Dosage: ?          QUANTITY:42 TABLET(S);?
     Route: 048
     Dates: start: 20210427, end: 20210503
  3. VITAMIN D [Concomitant]
     Active Substance: VITAMIN D NOS

REACTIONS (7)
  - Arthralgia [None]
  - Balance disorder [None]
  - Myalgia [None]
  - Pain in extremity [None]
  - Fatigue [None]
  - Limb injury [None]
  - Tendon pain [None]

NARRATIVE: CASE EVENT DATE: 20210503
